FAERS Safety Report 13465867 (Version 5)
Quarter: 2017Q3

REPORT INFORMATION
  Report Type: Report from Study
  Country: US (occurrence: US)
  Receive Date: 20170421
  Receipt Date: 20170721
  Transmission Date: 20171127
  Serious: No
  Sender: FDA-Public Use
  Company Number: PHEH2017US011727

PATIENT
  Age: 33 Year
  Sex: Female

DRUGS (1)
  1. GILENYA [Suspect]
     Active Substance: FINGOLIMOD HYDROCHLORIDE
     Indication: MULTIPLE SCLEROSIS
     Dosage: UNK UNK, QD
     Route: 048
     Dates: start: 20120510

REACTIONS (8)
  - Sinus disorder [Not Recovered/Not Resolved]
  - Ligament sprain [Unknown]
  - Skin discolouration [Unknown]
  - Cognitive disorder [Unknown]
  - Joint swelling [Unknown]
  - Cough [Not Recovered/Not Resolved]
  - Temperature intolerance [Unknown]
  - Fatigue [Recovering/Resolving]

NARRATIVE: CASE EVENT DATE: 20170419
